FAERS Safety Report 6279470-2 (Version None)
Quarter: 2009Q3

REPORT INFORMATION
  Report Type: 
  Country: None (occurrence: None)
  Receive Date: 20090721
  Receipt Date: 20090714
  Transmission Date: 20100115
  Serious: Yes (Other)
  Sender: FDA-Public Use
  Company Number: 2009SP015335

PATIENT
  Age: 54 Year
  Sex: Male

DRUGS (1)
  1. PEGATRON (PEGINTEFERON ALFA-2B W/RIBAVIRIN) (PEGYLATED INTERFERON ALFA [Suspect]
     Indication: HEPATITIS C
     Dates: start: 20090407

REACTIONS (4)
  - ABASIA [None]
  - ANAL HAEMORRHAGE [None]
  - HAEMORRHOIDS [None]
  - HYPOKINESIA [None]
